FAERS Safety Report 21411010 (Version 1)
Quarter: 2022Q4

REPORT INFORMATION
  Report Type: Spontaneous
  Country: US (occurrence: None)
  Receive Date: 20221004
  Receipt Date: 20221004
  Transmission Date: 20230113
  Serious: Yes (Other)
  Sender: FDA-Public Use
  Company Number: None

PATIENT
  Age: 59 Year
  Sex: Female
  Weight: 95.25 kg

DRUGS (1)
  1. TYSABRI [Suspect]
     Active Substance: NATALIZUMAB
     Dosage: FREQUENCY : MONTHLY;?
     Route: 042
     Dates: start: 20220903, end: 20221001

REACTIONS (5)
  - Hypoaesthesia [None]
  - Paraesthesia [None]
  - Tachycardia [None]
  - Nausea [None]
  - Cold sweat [None]

NARRATIVE: CASE EVENT DATE: 20221001
